FAERS Safety Report 21298009 (Version 2)
Quarter: 2022Q4

REPORT INFORMATION
  Report Type: Report from Study
  Country: GB (occurrence: GB)
  Receive Date: 20220906
  Receipt Date: 20221206
  Transmission Date: 20230113
  Serious: Yes (Hospitalization)
  Sender: FDA-Public Use
  Company Number: GB-PFIZER INC-PV202200056893

PATIENT
  Age: 45 Year
  Sex: Female
  Weight: 71.7 kg

DRUGS (6)
  1. GEMCITABINE HYDROCHLORIDE [Suspect]
     Active Substance: GEMCITABINE HYDROCHLORIDE
     Indication: Cholangiocarcinoma
     Dosage: 1000 MG/M2 (1800 MG), CYCLIC (DAYS 1 AND 8 OF EVERY 3-WEEK CYCLE FOR UP TO 8 CYCLES)
     Route: 042
     Dates: start: 20220624, end: 20220831
  2. CISPLATIN [Suspect]
     Active Substance: CISPLATIN
     Indication: Cholangiocarcinoma
     Dosage: 25 MG/M2 (45 MG), CYCLIC (DAYS 1 AND 8 OF EVERY 3-WEEK CYCLE FOR UP TO 8 CYCLES)
     Route: 042
     Dates: start: 20220624, end: 20220831
  3. SODIUM ACID PHOSPHATE ANHYDRATE [Concomitant]
     Dosage: UNK
     Dates: start: 20220812
  4. ONDANSETRON [Concomitant]
     Active Substance: ONDANSETRON
     Dosage: UNK
     Dates: start: 20220812, end: 20220812
  5. DEXAMETHASONE [Concomitant]
     Active Substance: DEXAMETHASONE
     Dosage: UNK
     Dates: start: 20220812, end: 20220812
  6. APREPITANT [Concomitant]
     Active Substance: APREPITANT
     Dosage: UNK
     Dates: start: 20220813, end: 20220815

REACTIONS (1)
  - Biliary sepsis [Recovered/Resolved]

NARRATIVE: CASE EVENT DATE: 20220817
